FAERS Safety Report 8556946-6 (Version None)
Quarter: 2012Q3

REPORT INFORMATION
  Report Type: 
  Country: None (occurrence: None)
  Receive Date: 20120801
  Receipt Date: 20120717
  Transmission Date: 20120928
  Serious: Yes (Life-Threatening, Hospitalization, Other)
  Sender: FDA-Public Use
  Company Number: FR-ROCHE-1075640

PATIENT
  Sex: Female
  Weight: 54 kg

DRUGS (22)
  1. ACTEMRA [Suspect]
     Indication: RHEUMATOID ARTHRITIS
     Dosage: MONTHLY DOSE 432 MG
     Route: 042
     Dates: start: 20100803, end: 20101126
  2. MABTHERA [Suspect]
     Dates: start: 20120101
  3. METHOTREXATE SODIUM [Suspect]
     Indication: PRODUCT USED FOR UNKNOWN INDICATION
     Route: 048
     Dates: start: 20100101, end: 20101216
  4. METHOTREXATE SODIUM [Suspect]
     Dates: start: 20080101
  5. METHOTREXATE SODIUM [Suspect]
     Route: 048
     Dates: start: 19950101, end: 20101216
  6. PIROXICAM [Concomitant]
     Indication: RHEUMATOID ARTHRITIS
     Route: 048
     Dates: start: 20080318
  7. FOLIC ACID [Concomitant]
     Dates: start: 20100903
  8. MABTHERA [Suspect]
     Indication: RHEUMATOID ARTHRITIS
     Route: 042
     Dates: start: 20090127, end: 20090212
  9. ETANERCEPT [Suspect]
     Indication: RHEUMATOID ARTHRITIS
     Route: 058
     Dates: start: 20080101, end: 20080101
  10. ACETAMINOPHEN [Concomitant]
  11. MABTHERA [Suspect]
     Dates: start: 20100105, end: 20100119
  12. ALUMINUM HYDROXIDE AND MAGNESIUM TRISILICATE [Concomitant]
  13. INDAPAMIDE [Concomitant]
     Dates: start: 20081217
  14. FELDENE [Concomitant]
  15. VITAMIN D [Concomitant]
     Dates: start: 20081217
  16. PROTELOS [Concomitant]
     Route: 048
     Dates: start: 20101126
  17. FERROUS SULFATE TAB [Concomitant]
  18. IMODIUM [Concomitant]
  19. OMEPRAZOLE [Concomitant]
     Route: 048
     Dates: start: 20081217
  20. ARIXTRA [Concomitant]
  21. PREDNISONE TAB [Concomitant]
     Route: 048
     Dates: start: 20100105
  22. CALCIUM CARBONATE [Concomitant]
     Dates: start: 20081217

REACTIONS (17)
  - ABSCESS [None]
  - LYMPHADENOPATHY [None]
  - NECK PAIN [None]
  - ARTHRALGIA [None]
  - DIVERTICULITIS [None]
  - ANAEMIA [None]
  - HEPATOCELLULAR INJURY [None]
  - DIFFUSE LARGE B-CELL LYMPHOMA [None]
  - PERITONITIS [None]
  - PULMONARY EMBOLISM [None]
  - WEIGHT DECREASED [None]
  - LYMPHOMA [None]
  - LYMPHOPENIA [None]
  - INTESTINAL PERFORATION [None]
  - CYTOMEGALOVIRUS COLITIS [None]
  - BASAL CELL CARCINOMA [None]
  - IMMUNOSUPPRESSION [None]
